FAERS Safety Report 24782781 (Version 1)
Quarter: 2024Q4

REPORT INFORMATION
  Report Type: Spontaneous
  Country: US (occurrence: US)
  Receive Date: 20241227
  Receipt Date: 20241227
  Transmission Date: 20250115
  Serious: No
  Sender: BRISTOL-MYERS SQUIBB COMPANY
  Company Number: US-BRISTOL-MYERS SQUIBB COMPANY-2024-200533

PATIENT
  Age: 67 Year
  Sex: Male

DRUGS (2)
  1. OPDIVO [Suspect]
     Active Substance: NIVOLUMAB
     Indication: Product used for unknown indication
     Dosage: STRENGTH: 120 MG
     Route: 042
     Dates: start: 20240102
  2. OPDIVO [Suspect]
     Active Substance: NIVOLUMAB
     Dosage: STRENGTH: 240
     Route: 042
     Dates: start: 20240102

REACTIONS (2)
  - Product dose omission issue [Unknown]
  - Product container seal issue [Unknown]
